FAERS Safety Report 9490842 (Version 1)
Quarter: 2013Q3

REPORT INFORMATION
  Report Type: Spontaneous
  Country: US (occurrence: None)
  Receive Date: 20130826
  Receipt Date: 20130826
  Transmission Date: 20140515
  Serious: Yes (Death)
  Sender: FDA-Public Use
  Company Number: 2012-1523

PATIENT
  Age: 60 Year
  Sex: Male

DRUGS (13)
  1. KYPROLIS [Suspect]
     Indication: PLASMA CELL MYELOMA
     Dosage: 2 IN 1 WK
     Route: 042
     Dates: start: 20121114
  2. DECADRON (MEXAMEHASONE) (DEXAMETHASONE) [Concomitant]
  3. NEUROTRONIN (GABAPENTIN) (GABAPENTIN) [Concomitant]
  4. NOVALOG (INSULIN ASPART) (INSULIN ASPART) [Concomitant]
  5. LANUTS (INSULIN GLARGINE) (INSULIN GLARGINE) [Concomitant]
  6. ACYCLOVIR (ACICLOVIR) (ACICLOVIR) [Concomitant]
  7. ATIVAN (LORAZEPAM) (LORAZEPAM) [Concomitant]
  8. LORTAB (PARACETAMOL) (PARACETAMOL) [Concomitant]
  9. SKELAXIN (METAXALONE) 9METAXALONE) [Concomitant]
  10. LISINOPRIL (LISINOPRIL) (LISINOPRIL) [Concomitant]
  11. ALDACTONE (SPIRONOLACTONE) (SPIRONOLACTONE) [Concomitant]
  12. LIPITOR (ATOVASTATIN CALCIUM) (ATORVASTATIN CALCIUM) [Concomitant]
  13. WARFARIN (WARFARIN) [Concomitant]

REACTIONS (2)
  - Blood glucose increased [None]
  - Neuropathy peripheral [None]
